FAERS Safety Report 4942989-8 (Version None)
Quarter: 2006Q1

REPORT INFORMATION
  Report Type: 
  Country: None (occurrence: None)
  Receive Date: 20060314
  Receipt Date: 20060310
  Transmission Date: 20060701
  Serious: Yes (Other)
  Sender: FDA-Public Use
  Company Number: US-GLAXOSMITHKLINE-A0597159A

PATIENT
  Age: 64 Year
  Sex: Female

DRUGS (3)
  1. REQUIP [Suspect]
     Indication: RESTLESS LEGS SYNDROME
     Dosage: .25MG SINGLE DOSE
     Route: 048
     Dates: start: 20060303, end: 20060303
  2. MULTI-VITAMIN [Concomitant]
  3. CALCIUM GLUCONATE [Concomitant]

REACTIONS (2)
  - HEART RATE INCREASED [None]
  - LOSS OF CONSCIOUSNESS [None]
